FAERS Safety Report 9998887 (Version 1)
Quarter: 2014Q1

REPORT INFORMATION
  Report Type: Spontaneous
  Country: CA (occurrence: CA)
  Receive Date: 20140312
  Receipt Date: 20140312
  Transmission Date: 20141002
  Serious: Yes (Disabling)
  Sender: FDA-Public Use
  Company Number: CA-009507513-1403CAN003982

PATIENT
  Age: 67 Year
  Sex: Female

DRUGS (7)
  1. FOSAVANCE [Suspect]
     Dosage: 1 DF, UNK
     Route: 048
  2. CALCIUM (UNSPECIFIED) (+) VITAMIN D (UNSPECIFIED) [Concomitant]
  3. PANTOPRAZOLE [Concomitant]
  4. PREMARIN [Concomitant]
  5. ROSUVASTATIN CALCIUM [Concomitant]
     Route: 048
  6. VALACYCLOVIR HYDROCHLORIDE [Concomitant]
  7. VALSARTAN [Concomitant]

REACTIONS (6)
  - Pain [Recovered/Resolved]
  - Dry skin [Recovered/Resolved]
  - General physical health deterioration [Recovered/Resolved]
  - Dizziness [Recovered/Resolved]
  - Headache [Recovered/Resolved]
  - Nausea [Recovered/Resolved]
